FAERS Safety Report 22930705 (Version 3)
Quarter: 2024Q1

REPORT INFORMATION
  Report Type: Spontaneous
  Country: US (occurrence: US)
  Receive Date: 20230911
  Receipt Date: 20240108
  Transmission Date: 20240410
  Serious: Yes (Hospitalization, Other)
  Sender: FDA-Public Use
  Company Number: US-BRISTOL-MYERS SQUIBB COMPANY-2023-127877

PATIENT
  Age: 70 Year
  Sex: Male
  Weight: 83.01 kg

DRUGS (3)
  1. POMALYST [Suspect]
     Active Substance: POMALIDOMIDE
     Indication: Plasma cell myeloma
     Dosage: 3WKSON,1OFF
     Route: 048
  2. POMALYST [Suspect]
     Active Substance: POMALIDOMIDE
     Dosage: 3 WEEKS ON 1 WEEK OFF
     Route: 048
     Dates: start: 20230801
  3. POMALYST [Suspect]
     Active Substance: POMALIDOMIDE
     Dates: start: 20230906

REACTIONS (3)
  - Febrile neutropenia [Unknown]
  - Gastric infection [Unknown]
  - Mental status changes [Unknown]

NARRATIVE: CASE EVENT DATE: 20230909
